FAERS Safety Report 4848589-2 (Version None)
Quarter: 2005Q4

REPORT INFORMATION
  Report Type: 
  Country: None (occurrence: None)
  Receive Date: 20051205
  Receipt Date: 20051128
  Transmission Date: 20060501
  Serious: Yes (Death)
  Sender: FDA-Public Use
  Company Number: HQWYE671022NOV05

PATIENT
  Age: 20 Year
  Sex: Male

DRUGS (3)
  1. EFFEXOR XR [Suspect]
     Indication: DEPRESSION
     Dosage: 75 MG 1X PER 1 DAY ORAL; 37.5 MG 1X PER 1 DAY ORAL
     Route: 048
     Dates: start: 20040701, end: 20050103
  2. EFFEXOR XR [Suspect]
     Indication: DEPRESSION
     Dosage: 75 MG 1X PER 1 DAY ORAL; 37.5 MG 1X PER 1 DAY ORAL
     Route: 048
     Dates: start: 20050104, end: 20050104
  3. EFFEXOR XR [Suspect]
     Indication: DEPRESSION
     Dosage: 75 MG 1X PER 1 DAY ORAL; 37.5 MG 1X PER 1 DAY ORAL
     Route: 048
     Dates: start: 20050105, end: 20050108

REACTIONS (6)
  - COMPLETED SUICIDE [None]
  - DRUG DEPENDENCE [None]
  - DRUG WITHDRAWAL SYNDROME [None]
  - INCORRECT DRUG DOSAGE FORM ADMINISTERED [None]
  - PSYCHOTIC DISORDER [None]
  - UNDERDOSE [None]
